FAERS Safety Report 8455986-5 (Version None)
Quarter: 2012Q2

REPORT INFORMATION
  Report Type: 
  Country: None (occurrence: None)
  Receive Date: 20120621
  Receipt Date: 20120614
  Transmission Date: 20120825
  Serious: Yes (Hospitalization)
  Sender: FDA-Public Use
  Company Number: DK-TEVA-343390ISR

PATIENT
  Sex: Male

DRUGS (1)
  1. FENTANYL [Suspect]
     Indication: PAIN
     Dosage: GIVEN TWO DOSES OF 0.5 MG.
     Dates: start: 20111010, end: 20111010

REACTIONS (3)
  - EPILEPSY [None]
  - RESPIRATORY ARREST [None]
  - CONVULSION [None]
